FAERS Safety Report 22741713 (Version 3)
Quarter: 2024Q4

REPORT INFORMATION
  Report Type: Spontaneous
  Country: JP (occurrence: JP)
  Receive Date: 20230724
  Receipt Date: 20241203
  Transmission Date: 20250115
  Serious: Yes (Other)
  Sender: ADVANZ PHARMA
  Company Number: JP-ADVANZ PHARMA-202307006145

PATIENT

DRUGS (7)
  1. ZONISAMIDE [Suspect]
     Active Substance: ZONISAMIDE
     Indication: Epilepsy
     Dosage: 100 MG, BID
     Route: 048
     Dates: end: 20230707
  2. ZONISAMIDE [Suspect]
     Active Substance: ZONISAMIDE
     Dosage: 100 MG, BID (RESUMED), 200 MG QD
     Route: 048
     Dates: start: 20230709
  3. LEVETIRACETAM [Suspect]
     Active Substance: LEVETIRACETAM
     Indication: Epilepsy
     Dosage: 500 MG, BID
     Route: 048
     Dates: end: 20230707
  4. LEVETIRACETAM [Suspect]
     Active Substance: LEVETIRACETAM
     Dosage: 500 MG (RESUMED)
     Dates: start: 20230709
  5. BISOPROLOL FUMARATE [Concomitant]
     Active Substance: BISOPROLOL FUMARATE
     Dosage: UNK (2.5 MG) 1 TABLET RESUMED)
     Dates: start: 20240709
  6. EDOXABAN TOSYLATE [Concomitant]
     Active Substance: EDOXABAN TOSYLATE
     Dosage: UNK
     Dates: end: 20230729
  7. LEVETIRACETAM [Concomitant]
     Active Substance: LEVETIRACETAM
     Dosage: 500 MG (500 MG 1 AMPULE)
     Dates: start: 20230707, end: 20230709

REACTIONS (1)
  - Blood creatine phosphokinase increased [Recovered/Resolved]

NARRATIVE: CASE EVENT DATE: 20230714
